FAERS Safety Report 4925096-X (Version None)
Quarter: 2006Q1

REPORT INFORMATION
  Report Type: 
  Country: None (occurrence: None)
  Receive Date: 20060228
  Receipt Date: 20051104
  Transmission Date: 20060701
  Serious: No
  Sender: FDA-Public Use
  Company Number: US-GLAXOSMITHKLINE-A0581065A

PATIENT
  Age: 36 Year
  Sex: Male

DRUGS (3)
  1. EPZICOM [Suspect]
     Indication: HIV INFECTION
     Dosage: 1TAB PER DAY
     Route: 048
     Dates: start: 20051016, end: 20051019
  2. KALETRA [Concomitant]
     Dosage: 4UNIT TWICE PER DAY
     Route: 065
  3. SUSTIVA [Concomitant]
     Route: 065

REACTIONS (7)
  - ANOREXIA [None]
  - CHILLS [None]
  - DIARRHOEA [None]
  - MALAISE [None]
  - NAUSEA [None]
  - PYREXIA [None]
  - VOMITING [None]
